FAERS Safety Report 7076259-1 (Version None)
Quarter: 2010Q4

REPORT INFORMATION
  Report Type: 
  Country: None (occurrence: None)
  Receive Date: 20101101
  Receipt Date: 20101022
  Transmission Date: 20110411
  Serious: Yes (Hospitalization, Other)
  Sender: FDA-Public Use
  Company Number: JP-JNJFOC-20101001644

PATIENT
  Sex: Male

DRUGS (4)
  1. RISPERDAL [Suspect]
     Indication: ILL-DEFINED DISORDER
     Route: 048
  2. LINTON [Suspect]
     Indication: ILL-DEFINED DISORDER
     Route: 065
  3. EMILACE [Suspect]
     Indication: ILL-DEFINED DISORDER
     Route: 048
  4. ARTANE [Concomitant]
     Indication: ILL-DEFINED DISORDER
     Route: 048

REACTIONS (2)
  - PAROPHTHALMIA [None]
  - VITH NERVE PARALYSIS [None]
